FAERS Safety Report 13832625 (Version 1)
Quarter: 2017Q3

REPORT INFORMATION
  Report Type: Spontaneous
  Country: FR (occurrence: FR)
  Receive Date: 20170804
  Receipt Date: 20170804
  Transmission Date: 20171127
  Serious: Yes (Other)
  Sender: FDA-Public Use
  Company Number: FR-BAYER-2017-147824

PATIENT
  Age: 34 Year
  Sex: Female

DRUGS (1)
  1. MIRENA [Suspect]
     Active Substance: LEVONORGESTREL
     Indication: CONTRACEPTION
     Dosage: 20 MCG/24HR, CONT
     Route: 015
     Dates: start: 20141202, end: 20170704

REACTIONS (15)
  - Irritability [Unknown]
  - Mood swings [Unknown]
  - Tachycardia [Unknown]
  - Fatigue [Unknown]
  - Abdominal distension [Unknown]
  - Depression [Unknown]
  - Acne [Unknown]
  - Vertigo [Unknown]
  - Aggression [Unknown]
  - Nausea [Unknown]
  - Abdominal pain [Unknown]
  - Anxiety [Unknown]
  - Loss of libido [Unknown]
  - Vulvovaginal mycotic infection [Unknown]
  - Migraine [Unknown]

NARRATIVE: CASE EVENT DATE: 201701
